FAERS Safety Report 17458280 (Version 2)
Quarter: 2020Q2

REPORT INFORMATION
  Report Type: Spontaneous
  Country: US (occurrence: US)
  Receive Date: 20200225
  Receipt Date: 20200423
  Transmission Date: 20200713
  Serious: Yes (Other)
  Sender: FDA-Public Use
  Company Number: US-BAUSCH-BL-2020-005133

PATIENT
  Age: 61 Year
  Sex: Male

DRUGS (1)
  1. ADVANCED EYE RELIEF/EYE WASH [Suspect]
     Active Substance: WATER
     Indication: ROUTINE HEALTH MAINTENANCE
     Route: 047
     Dates: start: 20200212, end: 20200213

REACTIONS (2)
  - Chemical burns of eye [Unknown]
  - Wrong technique in product usage process [Unknown]

NARRATIVE: CASE EVENT DATE: 20200212
